FAERS Safety Report 8494028-2 (Version None)
Quarter: 2012Q3

REPORT INFORMATION
  Report Type: 
  Country: None (occurrence: None)
  Receive Date: 20120709
  Receipt Date: 20120627
  Transmission Date: 20120928
  Serious: No
  Sender: FDA-Public Use
  Company Number: US-BIOGENIDEC-2012BI022847

PATIENT
  Sex: Female

DRUGS (4)
  1. AVONEX [Suspect]
     Indication: MULTIPLE SCLEROSIS
     Route: 030
     Dates: start: 20120101
  2. AVONEX [Suspect]
     Route: 030
     Dates: end: 20120101
  3. AVONEX [Suspect]
     Route: 030
     Dates: start: 20030718
  4. XANAX [Concomitant]
     Indication: ANXIETY

REACTIONS (7)
  - BIPOLAR DISORDER [None]
  - SCHIZOPHRENIA [None]
  - SLEEP APNOEA SYNDROME [None]
  - CATARACT [None]
  - MASS [None]
  - INSOMNIA [None]
  - DEPRESSION [None]
